FAERS Safety Report 13599631 (Version 3)
Quarter: 2017Q3

REPORT INFORMATION
  Report Type: Report from Study
  Country: None (occurrence: CA)
  Receive Date: 20170531
  Receipt Date: 20170828
  Transmission Date: 20171127
  Serious: Yes (Life-Threatening, Hospitalization, Other)
  Sender: FDA-Public Use
  Company Number: CA-ABBVIE-17K-028-1991272-00

PATIENT
  Age: 57 Year
  Sex: Female
  Weight: 81.72 kg

DRUGS (1)
  1. HUMIRA [Suspect]
     Active Substance: ADALIMUMAB
     Indication: PSORIASIS
     Route: 058
     Dates: start: 20160227

REACTIONS (5)
  - Dyslipidaemia [Unknown]
  - Myocardial infarction [Recovered/Resolved]
  - Injection site pain [Not Recovered/Not Resolved]
  - Coronary artery occlusion [Recovering/Resolving]
  - Mammogram abnormal [Not Recovered/Not Resolved]

NARRATIVE: CASE EVENT DATE: 2017
